FAERS Safety Report 24210699 (Version 1)
Quarter: 2024Q3

REPORT INFORMATION
  Report Type: Spontaneous
  Country: US (occurrence: None)
  Receive Date: 20240814
  Receipt Date: 20240814
  Transmission Date: 20241016
  Serious: No
  Sender: ASTRAZENECA
  Company Number: 2024A172687

PATIENT
  Sex: Female

DRUGS (1)
  1. BRILINTA [Suspect]
     Active Substance: TICAGRELOR
     Indication: Stent placement
     Dosage: 90.0MG UNKNOWN
     Route: 048

REACTIONS (4)
  - Contusion [Unknown]
  - COVID-19 [Unknown]
  - Drug intolerance [Unknown]
  - Product use issue [Unknown]
